FAERS Safety Report 24296784 (Version 1)
Quarter: 2024Q3

REPORT INFORMATION
  Report Type: Report from Study
  Country: US (occurrence: US)
  Receive Date: 20240909
  Receipt Date: 20240909
  Transmission Date: 20241017
  Serious: Yes (Hospitalization)
  Sender: CHEPLAPHARM
  Company Number: None

PATIENT
  Age: 26 Year
  Sex: Male

DRUGS (35)
  1. CLONAZEPAM [Suspect]
     Active Substance: CLONAZEPAM
     Indication: Seizure
  2. PROPOFOL [Suspect]
     Active Substance: PROPOFOL
     Indication: Sedation
     Dosage: ON DAYS 4, 8, AND 11
  3. PROPOFOL [Suspect]
     Active Substance: PROPOFOL
     Indication: Cerebrospinal fluid reservoir placement
     Dosage: ON DAYS 4, 8, AND 11
  4. BLINATUMOMAB [Suspect]
     Active Substance: BLINATUMOMAB
     Indication: Neurotoxicity
     Dosage: DAILY DOSE: 9 MICROGRAM
  5. BLINATUMOMAB [Suspect]
     Active Substance: BLINATUMOMAB
     Indication: Unresponsive to stimuli
     Dosage: DAILY DOSE: 9 MICROGRAM
  6. BLINATUMOMAB [Suspect]
     Active Substance: BLINATUMOMAB
     Indication: Metastases to meninges
     Dosage: DAILY DOSE: 9 MICROGRAM
  7. BLINATUMOMAB [Suspect]
     Active Substance: BLINATUMOMAB
     Indication: Incontinence
     Dosage: DAILY DOSE: 9 MICROGRAM
  8. BLINATUMOMAB [Suspect]
     Active Substance: BLINATUMOMAB
     Indication: Neurotoxicity
     Dosage: ESCALATED TO 28 MG DAILY ON DAY 8?DAILY DOSE: 28 MICROGRAM
  9. BLINATUMOMAB [Suspect]
     Active Substance: BLINATUMOMAB
     Indication: Unresponsive to stimuli
     Dosage: ESCALATED TO 28 MG DAILY ON DAY 8?DAILY DOSE: 28 MICROGRAM
  10. BLINATUMOMAB [Suspect]
     Active Substance: BLINATUMOMAB
     Indication: Metastases to meninges
     Dosage: ESCALATED TO 28 MG DAILY ON DAY 8?DAILY DOSE: 28 MICROGRAM
  11. BLINATUMOMAB [Suspect]
     Active Substance: BLINATUMOMAB
     Indication: Incontinence
     Dosage: ESCALATED TO 28 MG DAILY ON DAY 8?DAILY DOSE: 28 MICROGRAM
  12. LACOSAMIDE [Suspect]
     Active Substance: LACOSAMIDE
     Indication: Seizure
  13. METHOTREXATE [Suspect]
     Active Substance: METHOTREXATE
     Indication: Unresponsive to stimuli
     Dosage: SIX DOSES OF TRIPLE INTRATHECAL CHEMOTHERAPY
     Route: 037
  14. METHOTREXATE [Suspect]
     Active Substance: METHOTREXATE
     Indication: Acute lymphocytic leukaemia recurrent
     Dosage: SIX DOSES OF TRIPLE INTRATHECAL CHEMOTHERAPY
     Route: 037
  15. METHOTREXATE [Suspect]
     Active Substance: METHOTREXATE
     Indication: Neurotoxicity
     Dosage: SIX DOSES OF TRIPLE INTRATHECAL CHEMOTHERAPY
     Route: 037
  16. METHOTREXATE [Suspect]
     Active Substance: METHOTREXATE
     Indication: Incontinence
     Dosage: SIX DOSES OF TRIPLE INTRATHECAL CHEMOTHERAPY
     Route: 037
  17. LEVETIRACETAM [Suspect]
     Active Substance: LEVETIRACETAM
     Indication: Seizure
  18. MIDAZOLAM [Suspect]
     Active Substance: MIDAZOLAM
     Indication: Cerebrospinal fluid reservoir placement
     Dosage: ON DAYS 4, 8, AND 11
  19. MIDAZOLAM [Suspect]
     Active Substance: MIDAZOLAM
     Indication: Sedation
     Dosage: ON DAYS 4, 8, AND 11
  20. HYDROCORTISONE [Suspect]
     Active Substance: HYDROCORTISONE\HYDROCORTISONE ACETATE
     Indication: Unresponsive to stimuli
     Dosage: SIX DOSES OF TRIPLE INTRATHECAL CHEMOTHERAPY
     Route: 037
  21. HYDROCORTISONE [Suspect]
     Active Substance: HYDROCORTISONE\HYDROCORTISONE ACETATE
     Indication: Incontinence
     Dosage: SIX DOSES OF TRIPLE INTRATHECAL CHEMOTHERAPY
     Route: 037
  22. HYDROCORTISONE [Suspect]
     Active Substance: HYDROCORTISONE\HYDROCORTISONE ACETATE
     Indication: Acute lymphocytic leukaemia recurrent
     Dosage: SIX DOSES OF TRIPLE INTRATHECAL CHEMOTHERAPY
     Route: 037
  23. HYDROCORTISONE [Suspect]
     Active Substance: HYDROCORTISONE\HYDROCORTISONE ACETATE
     Indication: Neurotoxicity
     Dosage: SIX DOSES OF TRIPLE INTRATHECAL CHEMOTHERAPY
     Route: 037
  24. CYTARABINE [Suspect]
     Active Substance: CYTARABINE
     Indication: Acute lymphocytic leukaemia recurrent
     Dosage: SIX DOSES OF TRIPLE INTRATHECAL CHEMOTHERAPY
     Route: 037
  25. CYTARABINE [Suspect]
     Active Substance: CYTARABINE
     Indication: Incontinence
     Dosage: SIX DOSES OF TRIPLE INTRATHECAL CHEMOTHERAPY
     Route: 037
  26. CYTARABINE [Suspect]
     Active Substance: CYTARABINE
     Indication: Unresponsive to stimuli
     Dosage: SIX DOSES OF TRIPLE INTRATHECAL CHEMOTHERAPY
     Route: 037
  27. CYTARABINE [Suspect]
     Active Substance: CYTARABINE
     Indication: Neurotoxicity
     Dosage: SIX DOSES OF TRIPLE INTRATHECAL CHEMOTHERAPY
     Route: 037
  28. DEXAMETHASONE [Suspect]
     Active Substance: DEXAMETHASONE
     Indication: Acute lymphocytic leukaemia recurrent
     Dosage: DAILY DOSE: 24 MILLIGRAM
     Route: 042
  29. DEXAMETHASONE [Suspect]
     Active Substance: DEXAMETHASONE
     Indication: Acute lymphocytic leukaemia recurrent
     Dosage: DAILY DOSE: 16 MILLIGRAM
     Route: 042
  30. DEXAMETHASONE [Suspect]
     Active Substance: DEXAMETHASONE
     Indication: Acute lymphocytic leukaemia recurrent
     Dosage: DAILY DOSE: 8 MILLIGRAM
     Route: 042
  31. VALPROIC ACID [Suspect]
     Active Substance: VALPROIC ACID
     Indication: Seizure
  32. LORAZEPAM [Suspect]
     Active Substance: LORAZEPAM
     Indication: Seizure
  33. MERCAPTOPURINE [Concomitant]
     Active Substance: MERCAPTOPURINE
  34. VINCRISTINE [Concomitant]
     Active Substance: VINCRISTINE
  35. PREDNISONE [Concomitant]
     Active Substance: PREDNISONE

REACTIONS (5)
  - Febrile neutropenia [Unknown]
  - Pneumonia aspiration [Unknown]
  - Bradycardia [Unknown]
  - Oral candidiasis [Unknown]
  - Drug ineffective [Unknown]
